FAERS Safety Report 18552405 (Version 2)
Quarter: 2020Q4

REPORT INFORMATION
  Report Type: Report from Study
  Country: BR (occurrence: BR)
  Receive Date: 20201127
  Receipt Date: 20201203
  Transmission Date: 20210114
  Serious: Yes (Other)
  Sender: FDA-Public Use
  Company Number: BR-UCBSA-2020047306

PATIENT
  Sex: Female
  Weight: 87 kg

DRUGS (5)
  1. AAS [Concomitant]
     Active Substance: ASPIRIN
     Dosage: 100 MILLIGRAM SOME TIMES
     Route: 048
  2. METFORMINA [METFORMIN] [Concomitant]
     Active Substance: METFORMIN HYDROCHLORIDE
     Indication: DIABETES MELLITUS
     Dosage: 850 MILLIGRAM
  3. CERTOLIZUMAB PEGOL RA [Suspect]
     Active Substance: CERTOLIZUMAB PEGOL
     Indication: RHEUMATOID ARTHRITIS
     Dosage: 200 MILLIGRAM, EV 15 DAYS
     Route: 058
  4. AAS [Concomitant]
     Active Substance: ASPIRIN
     Indication: DIABETES MELLITUS
     Dosage: 1 DOSAGE FORM, ONCE DAILY (QD)
     Route: 048
  5. ARADOIS [Concomitant]
     Active Substance: LOSARTAN POTASSIUM
     Indication: PRODUCT USED FOR UNKNOWN INDICATION
     Dosage: 50 MILLIGRAM, ONCE DAILY (QD)
     Route: 048

REACTIONS (5)
  - Weight increased [Recovering/Resolving]
  - Therapy interrupted [Unknown]
  - Rheumatoid arthritis [Recovering/Resolving]
  - Cataract [Recovering/Resolving]
  - Product availability issue [Unknown]
